FAERS Safety Report 17481400 (Version 1)
Quarter: 2020Q1

REPORT INFORMATION
  Report Type: Spontaneous
  Country: IT (occurrence: IT)
  Receive Date: 20200302
  Receipt Date: 20200302
  Transmission Date: 20200409
  Serious: Yes (Other)
  Sender: FDA-Public Use
  Company Number: IT-AMGEN-ITASP2020032177

PATIENT

DRUGS (4)
  1. EPIDOXORUBICINA [Concomitant]
     Active Substance: EPIRUBICIN
     Indication: BREAST CANCER
     Dosage: 75 MILLIGRAM/SQ. METER, CYCLICAL (DAY 1)
     Route: 040
  2. VINORELBINE [Concomitant]
     Active Substance: VINORELBINE TARTRATE
     Dosage: 60 MILLIGRAM/SQ. METER, CYCLICAL (DAY 8)
     Route: 048
  3. PEGFILGRASTIM [Suspect]
     Active Substance: PEGFILGRASTIM
     Indication: PROPHYLAXIS
     Dosage: 6 MILLIGRAM, AFTER CHEMO
     Route: 058
  4. VINORELBINE [Concomitant]
     Active Substance: VINORELBINE TARTRATE
     Indication: BREAST CANCER
     Dosage: 25 MILLIGRAM/SQ. METER, CYCLICAL (DAY 1)
     Route: 042

REACTIONS (9)
  - Fatigue [Unknown]
  - Thrombocytopenia [Unknown]
  - Vomiting [Unknown]
  - Polyneuropathy [Unknown]
  - Diarrhoea [Unknown]
  - Neutropenia [Unknown]
  - Stomatitis [Unknown]
  - Anaemia [Unknown]
  - Nausea [Unknown]
